FAERS Safety Report 24777214 (Version 1)
Quarter: 2024Q4

REPORT INFORMATION
  Report Type: Spontaneous
  Country: FR (occurrence: FR)
  Receive Date: 20241226
  Receipt Date: 20241226
  Transmission Date: 20250115
  Serious: Yes (Death)
  Sender: TEVA
  Company Number: None

PATIENT
  Age: 64 Year
  Sex: Male

DRUGS (10)
  1. ALPRAZOLAM [Suspect]
     Active Substance: ALPRAZOLAM
     Indication: Autism spectrum disorder
     Dosage: MORNING AND NOON
     Route: 048
     Dates: start: 202003
  2. VALPROIC ACID [Suspect]
     Active Substance: VALPROIC ACID
     Indication: Behaviour disorder
     Dosage: EVENING
     Route: 048
     Dates: start: 202005
  3. VALPROIC ACID [Suspect]
     Active Substance: VALPROIC ACID
     Indication: Behaviour disorder
     Dosage: MORNING
     Route: 048
     Dates: start: 202005
  4. MACROGOL 4000 ARROW [Concomitant]
     Indication: Product used for unknown indication
     Route: 065
     Dates: start: 202203
  5. HERBALS\SAW PALMETTO [Concomitant]
     Active Substance: HERBALS\SAW PALMETTO
     Indication: Product used for unknown indication
     Route: 065
  6. HALOPERIDOL [Suspect]
     Active Substance: HALOPERIDOL
     Indication: Autism spectrum disorder
     Dosage: MORNING, NOON AND NIGHT
     Route: 065
     Dates: start: 202003
  7. OLANZAPINE [Suspect]
     Active Substance: OLANZAPINE
     Indication: Behaviour disorder
     Dosage: MORNING AND EVENING
     Route: 065
     Dates: start: 202003
  8. ALFUZOSIN [Concomitant]
     Active Substance: ALFUZOSIN
     Indication: Product used for unknown indication
     Route: 065
  9. CYAMEMAZINE [Suspect]
     Active Substance: CYAMEMAZINE
     Indication: Autism spectrum disorder
     Dosage: MORNING
     Route: 048
     Dates: start: 202309
  10. CHOLECALCIFEROL [Concomitant]
     Active Substance: CHOLECALCIFEROL
     Indication: Product used for unknown indication
     Dosage: ORAL SOLUTION IN AMPOULE
     Route: 065

REACTIONS (1)
  - Choking [Fatal]

NARRATIVE: CASE EVENT DATE: 20241022
